FAERS Safety Report 9663815 (Version 1)
Quarter: 2013Q4

REPORT INFORMATION
  Report Type: Report from Study
  Country: CA (occurrence: CA)
  Receive Date: 20131101
  Receipt Date: 20131101
  Transmission Date: 20140711
  Serious: Yes (Hospitalization)
  Sender: FDA-Public Use
  Company Number: CA-JNJFOC-20131017981

PATIENT
  Sex: Female

DRUGS (4)
  1. REMICADE [Suspect]
     Indication: COLITIS ULCERATIVE
     Route: 042
     Dates: start: 20130205
  2. BENADRYL [Concomitant]
     Indication: PREMEDICATION
     Dosage: 25-50 MG
     Route: 065
  3. TYLENOL [Concomitant]
     Indication: PREMEDICATION
     Dosage: 25-50 MG
     Route: 065
  4. HYDROCORTISONE [Concomitant]
     Indication: PREMEDICATION
     Dosage: 25-50 MG
     Route: 065

REACTIONS (2)
  - Kidney infection [Unknown]
  - Bacteraemia [Unknown]
